FAERS Safety Report 6386344-5 (Version None)
Quarter: 2009Q4

REPORT INFORMATION
  Report Type: 
  Country: None (occurrence: None)
  Receive Date: 20091002
  Receipt Date: 20090923
  Transmission Date: 20100525
  Serious: Yes (Hospitalization, Other)
  Sender: FDA-Public Use
  Company Number: US-ASTRAZENECA-2009SE06423

PATIENT
  Age: 917 Month
  Sex: Female

DRUGS (9)
  1. CRESTOR [Suspect]
     Route: 048
     Dates: start: 20090101
  2. ENTOCORT EC [Suspect]
     Route: 048
  3. LOTREL [Concomitant]
     Dosage: 5-10 MG DAILY
  4. ASPIRIN [Concomitant]
  5. ASACOL [Concomitant]
  6. MULTI-VITAMIN [Concomitant]
     Dosage: DAILY
  7. ACTOS [Concomitant]
  8. ZOLOFT [Concomitant]
  9. VITAMIN E [Concomitant]

REACTIONS (5)
  - ANAEMIA [None]
  - CARDIAC VALVE DISEASE [None]
  - DEPRESSION [None]
  - PANCREATITIS CHRONIC [None]
  - URINARY TRACT INFECTION [None]
